FAERS Safety Report 9777566 (Version 1)
Quarter: 2013Q4

REPORT INFORMATION
  Report Type: Spontaneous
  Country: GB (occurrence: GB)
  Receive Date: 20131222
  Receipt Date: 20131222
  Transmission Date: 20140711
  Serious: Yes (Disabling)
  Sender: FDA-Public Use
  Company Number: GB-TEVA-451399ISR

PATIENT
  Age: 68 Year
  Sex: Female

DRUGS (2)
  1. SALBUTAMOL [Suspect]
     Indication: ASTHMA
     Dosage: TWO PUFFS WHEN REQUIRED
     Route: 055
     Dates: start: 20131115, end: 20131120
  2. SERETIDE [Suspect]
     Indication: ASTHMA
     Dosage: SALMETEROL 500 MCG /FLUTICASON 50MCG
     Route: 055
     Dates: start: 20131115, end: 20131120

REACTIONS (11)
  - Fatigue [Recovering/Resolving]
  - Lethargy [Recovering/Resolving]
  - Headache [Recovering/Resolving]
  - Wheezing [Recovering/Resolving]
  - Increased bronchial secretion [Recovering/Resolving]
  - Sleep disorder [Recovering/Resolving]
  - Nightmare [Recovering/Resolving]
  - Nausea [Recovering/Resolving]
  - Hunger [Recovering/Resolving]
  - Diarrhoea [Recovering/Resolving]
  - Dyspnoea [Recovering/Resolving]
